FAERS Safety Report 7378369-8 (Version None)
Quarter: 2011Q1

REPORT INFORMATION
  Report Type: 
  Country: None (occurrence: None)
  Receive Date: 20110328
  Receipt Date: 20110322
  Transmission Date: 20110831
  Serious: Yes (Life-Threatening)
  Sender: FDA-Public Use
  Company Number: AU-ASTRAZENECA-2011SE16198

PATIENT
  Age: 23091 Day
  Sex: Female
  Weight: 70 kg

DRUGS (4)
  1. NAROPIN [Suspect]
     Dates: start: 20101105, end: 20101105
  2. MIDAZOLAM [Concomitant]
  3. FENTANYL [Concomitant]
  4. PATENT BLUE V [Suspect]
     Dates: start: 20101105, end: 20101105

REACTIONS (6)
  - RASH [None]
  - LIP DISORDER [None]
  - OXYGEN SATURATION DECREASED [None]
  - DYSPNOEA [None]
  - ANAPHYLACTIC REACTION [None]
  - EYE SWELLING [None]
